FAERS Safety Report 11823160 (Version 3)
Quarter: 2016Q2

REPORT INFORMATION
  Report Type: Spontaneous
  Country: US (occurrence: US)
  Receive Date: 20151210
  Receipt Date: 20160520
  Transmission Date: 20160815
  Serious: No
  Sender: FDA-Public Use
  Company Number: US-ACTELION PHARMACEUTICALS US, INC.-A-NJ2015-128195

PATIENT
  Age: 27 Year
  Sex: Female

DRUGS (1)
  1. VALCHLOR [Suspect]
     Active Substance: MECHLORETHAMINE
     Indication: MYCOSIS FUNGOIDES
     Dosage: UNK, DAILY
     Route: 061
     Dates: start: 20150725

REACTIONS (16)
  - Skin burning sensation [Not Recovered/Not Resolved]
  - Skin warm [Unknown]
  - Skin exfoliation [Unknown]
  - Skin swelling [Not Recovered/Not Resolved]
  - Anal haemorrhage [Unknown]
  - Vomiting [Unknown]
  - Nausea [Unknown]
  - Skin discolouration [Unknown]
  - Rash pustular [Not Recovered/Not Resolved]
  - Night sweats [Unknown]
  - Skin texture abnormal [Not Recovered/Not Resolved]
  - Migraine [Unknown]
  - Back pain [Unknown]
  - Wound [Not Recovered/Not Resolved]
  - Pruritus [Unknown]
  - Pain [Unknown]

NARRATIVE: CASE EVENT DATE: 201511
